FAERS Safety Report 6867550-X (Version None)
Quarter: 2010Q3

REPORT INFORMATION
  Report Type: 
  Country: None (occurrence: None)
  Receive Date: 20100722
  Receipt Date: 20100714
  Transmission Date: 20110219
  Serious: Yes (Other)
  Sender: FDA-Public Use
  Company Number: JP-BAYER-201013552BYL

PATIENT
  Age: 69 Year
  Sex: Male

DRUGS (4)
  1. CIPROXAN-I.V. [Suspect]
     Indication: PNEUMONIA PNEUMOCOCCAL
     Route: 041
     Dates: start: 20071121
  2. PANIPENEM_BETAMIPRON [Concomitant]
     Indication: PNEUMONIA
     Route: 042
     Dates: start: 20071119
  3. MINOCYCLINE HYDROCHLORIDE [Concomitant]
     Indication: PNEUMONIA
     Route: 065
     Dates: start: 20071119, end: 20071120
  4. HYDROCORTISONE [Concomitant]
     Indication: PNEUMONIA
     Route: 065
     Dates: start: 20071119

REACTIONS (4)
  - HEPATIC FUNCTION ABNORMAL [None]
  - PNEUMONIA [None]
  - PYOTHORAX [None]
  - SEPTIC SHOCK [None]
